FAERS Safety Report 5618397-3 (Version None)
Quarter: 2008Q1

REPORT INFORMATION
  Report Type: 
  Country: None (occurrence: None)
  Receive Date: 20080207
  Receipt Date: 20080124
  Transmission Date: 20080703
  Serious: Yes (Hospitalization, Other)
  Sender: FDA-Public Use
  Company Number: US-AMGEN-QUU262415

PATIENT
  Sex: Female

DRUGS (3)
  1. ENBREL [Suspect]
     Indication: RHEUMATOID ARTHRITIS
     Route: 058
     Dates: start: 19981001
  2. METHOTREXATE [Concomitant]
     Dates: start: 19981001
  3. HYDROXYCHLOROQUINE [Concomitant]
     Dates: start: 19981001

REACTIONS (4)
  - CORONARY ARTERY OCCLUSION [None]
  - INJECTION SITE IRRITATION [None]
  - PNEUMONIA VIRAL [None]
  - WEIGHT DECREASED [None]
